FAERS Safety Report 6276321-7 (Version None)
Quarter: 2009Q3

REPORT INFORMATION
  Report Type: 
  Country: None (occurrence: None)
  Receive Date: 20090722
  Receipt Date: 20090714
  Transmission Date: 20100115
  Serious: Yes (Death)
  Sender: FDA-Public Use
  Company Number: US-ROCHE-641524

PATIENT
  Sex: Female

DRUGS (3)
  1. XELODA [Suspect]
     Indication: METASTATIC GASTRIC CANCER
     Route: 048
     Dates: start: 20080722
  2. EPIRUBICIN [Concomitant]
     Indication: METASTATIC GASTRIC CANCER
  3. OXALIPLATIN [Concomitant]
     Indication: METASTATIC GASTRIC CANCER

REACTIONS (3)
  - MALIGNANT NEOPLASM PROGRESSION [None]
  - MUCOSAL INFLAMMATION [None]
  - PALMAR-PLANTAR ERYTHRODYSAESTHESIA SYNDROME [None]
